FAERS Safety Report 7266880-X (Version None)
Quarter: 2011Q1

REPORT INFORMATION
  Report Type: 
  Country: None (occurrence: None)
  Receive Date: 20110201
  Receipt Date: 20110124
  Transmission Date: 20110831
  Serious: Yes (Other)
  Sender: FDA-Public Use
  Company Number: FR-JNJFOC-20110106972

PATIENT
  Sex: Male

DRUGS (5)
  1. FENTANYL CITRATE [Suspect]
     Indication: PAIN
     Route: 048
  2. FENTANYL CITRATE [Suspect]
     Route: 048
  3. DURAGESIC-100 [Suspect]
     Indication: PAIN
     Route: 062
  4. DURAGESIC-100 [Suspect]
     Route: 062
  5. LEXOMIL [Suspect]
     Indication: ILL-DEFINED DISORDER
     Route: 065

REACTIONS (4)
  - INAPPROPRIATE SCHEDULE OF DRUG ADMINISTRATION [None]
  - SOMNOLENCE [None]
  - DRUG INEFFECTIVE [None]
  - AGGRESSION [None]
